FAERS Safety Report 8496636-1 (Version None)
Quarter: 2012Q3

REPORT INFORMATION
  Report Type: 
  Country: None (occurrence: None)
  Receive Date: 20120709
  Receipt Date: 20120702
  Transmission Date: 20120928
  Serious: Yes (Hospitalization)
  Sender: FDA-Public Use
  Company Number: FR-B.I. PHARMACEUTICALS,INC./RIDGEFIELD-2012-FF-00804FF

PATIENT
  Sex: Female

DRUGS (13)
  1. OXYCONTIN [Suspect]
     Dates: start: 20120424
  2. ATARAX [Suspect]
     Dates: start: 20120423
  3. CELEBREX [Suspect]
     Dates: start: 20120424
  4. LYRICA [Suspect]
     Dates: start: 20120424
  5. VANCOMYCIN [Suspect]
     Dates: start: 20120424
  6. PRADAXA [Suspect]
     Dates: start: 20120425
  7. PYOSTACINE [Suspect]
     Dates: start: 20120424
  8. ACUPAN [Suspect]
     Dates: start: 20120424
  9. ONDANSETRON HCL [Suspect]
     Dates: start: 20120424
  10. ZANTAC [Suspect]
     Dates: start: 20120423
  11. OXYCODONE HCL [Suspect]
     Dates: start: 20120424
  12. KETOPROFEN [Suspect]
     Dates: start: 20120424
  13. ERYTHROMYCIN [Suspect]
     Dates: start: 20120425

REACTIONS (2)
  - ACUTE GENERALISED EXANTHEMATOUS PUSTULOSIS [None]
  - LIVER INJURY [None]
